FAERS Safety Report 4557936-0 (Version None)
Quarter: 2005Q1

REPORT INFORMATION
  Report Type: 
  Country: None (occurrence: None)
  Receive Date: 20050121
  Receipt Date: 20040209
  Transmission Date: 20050727
  Serious: No
  Sender: FDA-Public Use
  Company Number: US-BRISTOL-MYERS SQUIBB COMPANY-12509337

PATIENT
  Sex: Female

DRUGS (13)
  1. SERZONE [Suspect]
     Dosage: ^INGESTION PERIOD^ 4/4/2001-7/23/2001.  DRUG PURCHASED FROM 01-MAY-01 TO 29-APR-02.
     Route: 048
  2. NEXIUM [Concomitant]
  3. RANITIDINE HCL [Concomitant]
  4. PREMPHASE 14/14 [Concomitant]
  5. CLARITIN [Concomitant]
  6. SKELAXIN [Concomitant]
  7. AXID [Concomitant]
  8. AUGMENTIN '125' [Concomitant]
  9. HYDROXYZINE PAMOATE [Concomitant]
  10. ZYRTEC [Concomitant]
  11. ZITHROMAX [Concomitant]
  12. VANTIN [Concomitant]
  13. DOXYCYCLINE HCL [Concomitant]

REACTIONS (7)
  - ANAEMIA [None]
  - ARTHRALGIA [None]
  - BACK PAIN [None]
  - GASTRITIS EROSIVE [None]
  - LIVER FUNCTION TEST ABNORMAL [None]
  - NECK PAIN [None]
  - RASH [None]
